FAERS Safety Report 23320529 (Version 1)
Quarter: 2023Q4

REPORT INFORMATION
  Report Type: Spontaneous
  Country: US (occurrence: None)
  Receive Date: 20231219
  Receipt Date: 20231219
  Transmission Date: 20240110
  Serious: No
  Sender: FDA-Public Use
  Company Number: None

PATIENT

DRUGS (2)
  1. AMOXICILLIN [Suspect]
     Active Substance: AMOXICILLIN
  2. DEVICE [Suspect]
     Active Substance: DEVICE

REACTIONS (7)
  - Product dispensing error [None]
  - Incorrect dose administered [None]
  - Product preparation error [None]
  - Communication disorder [None]
  - Device information output issue [None]
  - Product preparation error [None]
  - Product label confusion [None]
